FAERS Safety Report 6240664-3 (Version None)
Quarter: 2009Q2

REPORT INFORMATION
  Report Type: 
  Country: None (occurrence: None)
  Receive Date: 20090623
  Receipt Date: 20090109
  Transmission Date: 20091009
  Serious: No
  Sender: FDA-Public Use
  Company Number: US-ASTRAZENECA-2008UW27923

PATIENT
  Sex: Male
  Weight: 71.7 kg

DRUGS (3)
  1. PULMICORT-100 [Suspect]
     Indication: ASTHMA
     Dosage: 180 MCG, 1 INHALATION TWICE DAILY
     Route: 055
     Dates: start: 20080601
  2. ALBUTEROL [Concomitant]
  3. SIMVASTATIN [Concomitant]

REACTIONS (2)
  - ASTHMA [None]
  - BODY HEIGHT DECREASED [None]
